FAERS Safety Report 4816035-0 (Version None)
Quarter: 2005Q4

REPORT INFORMATION
  Report Type: 
  Country: None (occurrence: None)
  Receive Date: 20051026
  Receipt Date: 20051017
  Transmission Date: 20060501
  Serious: Yes (Death, Other)
  Sender: FDA-Public Use
  Company Number: 2004-10-1069

PATIENT
  Age: 77 Year
  Sex: Female
  Weight: 125.1928 kg

DRUGS (9)
  1. INTEGRILIN [Suspect]
     Indication: ISCHAEMIC STROKE
     Dosage: 23.8 ML IVPB INTRAVENOUS
     Route: 042
     Dates: start: 20040425, end: 20040425
  2. ACTIVASE [Suspect]
     Indication: ISCHAEMIC STROKE
     Dosage: 109.0 ML IVPB INTRAVENOUS
     Route: 042
     Dates: start: 20040425, end: 20040425
  3. LABETALOL [Concomitant]
  4. FAMOTIDINE [Concomitant]
  5. LEVOTHYROXINE [Concomitant]
  6. HYDRALAZINE [Concomitant]
  7. MIDAZOLAM [Concomitant]
  8. MORPHINE [Concomitant]
  9. SCOPOLAMINE [Concomitant]

REACTIONS (5)
  - ATRIAL FIBRILLATION [None]
  - BRAIN HERNIATION [None]
  - BRAIN OEDEMA [None]
  - CEREBRAL INFARCTION [None]
  - SINUS BRADYCARDIA [None]
